FAERS Safety Report 14492073 (Version 2)
Quarter: 2018Q1

REPORT INFORMATION
  Report Type: Spontaneous
  Country: US (occurrence: US)
  Receive Date: 20180206
  Receipt Date: 20180321
  Transmission Date: 20180509
  Serious: No
  Sender: FDA-Public Use
  Company Number: US-BIOGEN-2014BI026510

PATIENT
  Age: 42 Year
  Sex: Female

DRUGS (9)
  1. VITAMIN D [Concomitant]
     Active Substance: CHOLECALCIFEROL
     Indication: PRODUCT USED FOR UNKNOWN INDICATION
     Route: 065
  2. PREDNISONE. [Concomitant]
     Active Substance: PREDNISONE
     Indication: PRODUCT USED FOR UNKNOWN INDICATION
     Route: 065
  3. KLONOPIN [Concomitant]
     Active Substance: CLONAZEPAM
     Indication: PRODUCT USED FOR UNKNOWN INDICATION
     Route: 065
  4. ATENOLOL. [Concomitant]
     Active Substance: ATENOLOL
     Indication: PRODUCT USED FOR UNKNOWN INDICATION
     Route: 065
  5. ZANAFLEX [Concomitant]
     Active Substance: TIZANIDINE HYDROCHLORIDE
     Indication: PRODUCT USED FOR UNKNOWN INDICATION
     Route: 065
  6. VITAMIN C [Concomitant]
     Active Substance: ASCORBIC ACID
     Indication: PRODUCT USED FOR UNKNOWN INDICATION
     Route: 065
  7. TECFIDERA [Suspect]
     Active Substance: DIMETHYL FUMARATE
     Indication: MULTIPLE SCLEROSIS
     Route: 065
  8. FERROUS SULFATE. [Concomitant]
     Active Substance: FERROUS SULFATE
     Indication: PRODUCT USED FOR UNKNOWN INDICATION
     Route: 065
  9. LAMOTRIGINE EXTENDED RELEASE [Concomitant]
     Active Substance: LAMOTRIGINE
     Indication: PRODUCT USED FOR UNKNOWN INDICATION
     Route: 065

REACTIONS (33)
  - Drug intolerance [Unknown]
  - Vision blurred [Unknown]
  - Dizziness [Recovered/Resolved]
  - Sinus disorder [Unknown]
  - Arthralgia [Unknown]
  - Hypoaesthesia [Unknown]
  - Initial insomnia [Unknown]
  - Disturbance in attention [Unknown]
  - Gait disturbance [Unknown]
  - Myalgia [Unknown]
  - Haemorrhagic diathesis [Unknown]
  - Depression [Unknown]
  - Anxiety [Unknown]
  - Central nervous system lesion [Unknown]
  - Decreased interest [Unknown]
  - Appetite disorder [Unknown]
  - General physical health deterioration [Unknown]
  - Weight increased [Unknown]
  - Weight decreased [Unknown]
  - Joint stiffness [Unknown]
  - Anaemia [Unknown]
  - Visual impairment [Unknown]
  - Vertigo [Unknown]
  - Paraesthesia [Unknown]
  - Headache [Unknown]
  - Hypersensitivity [Recovered/Resolved]
  - Multiple sclerosis [Unknown]
  - Pollakiuria [Unknown]
  - Muscular weakness [Unknown]
  - Middle insomnia [Unknown]
  - Abdominal discomfort [Recovered/Resolved]
  - Increased tendency to bruise [Unknown]
  - Palpitations [Recovered/Resolved]

NARRATIVE: CASE EVENT DATE: 20130910
